FAERS Safety Report 7427870-7 (Version None)
Quarter: 2011Q2

REPORT INFORMATION
  Report Type: 
  Country: None (occurrence: None)
  Receive Date: 20110421
  Receipt Date: 20110408
  Transmission Date: 20111010
  Serious: Yes (Hospitalization, Other)
  Sender: FDA-Public Use
  Company Number: DE-ELI_LILLY_AND_COMPANY-DE201103008067

PATIENT
  Age: 62 Year
  Sex: Female

DRUGS (5)
  1. SIMVASTATIN [Concomitant]
  2. FLECAINIDE ACETATE [Concomitant]
     Dosage: UNK
     Dates: end: 20100101
  3. BISOPROLOL FUMARATE [Concomitant]
  4. MARCUMAR [Concomitant]
     Indication: ARRHYTHMIA
     Dosage: 1 UNK, UNK
     Dates: start: 20050101
  5. EVISTA [Suspect]
     Indication: OSTEOPOROSIS
     Dosage: 60 MG, UNK
     Route: 048
     Dates: start: 20010101, end: 20110408

REACTIONS (5)
  - ATRIAL FIBRILLATION [None]
  - CEREBRAL ARTERY THROMBOSIS [None]
  - ATRIAL THROMBOSIS [None]
  - SCOTOMA [None]
  - HAEMANGIOMA [None]
